FAERS Safety Report 15242947 (Version 12)
Quarter: 2019Q1

REPORT INFORMATION
  Report Type: Report from Study
  Country: BR (occurrence: BR)
  Receive Date: 20180806
  Receipt Date: 20190325
  Transmission Date: 20190417
  Serious: Yes (Hospitalization, Other)
  Sender: FDA-Public Use
  Company Number: BR-JNJFOC-20180533599

PATIENT
  Age: 49 Year
  Sex: Female
  Weight: 29 kg

DRUGS (16)
  1. STELARA [Suspect]
     Active Substance: USTEKINUMAB
     Indication: CROHN^S DISEASE
     Route: 058
     Dates: end: 20180828
  2. VONAU [Concomitant]
     Active Substance: ONDANSETRON HYDROCHLORIDE
     Route: 065
  3. VITAMIN E [Concomitant]
     Active Substance: .ALPHA.-TOCOPHEROL
     Route: 065
  4. STELARA [Suspect]
     Active Substance: USTEKINUMAB
     Indication: CROHN^S DISEASE
     Route: 058
     Dates: start: 20180510, end: 20180712
  5. IMOSEC [Concomitant]
     Active Substance: LOPERAMIDE
     Route: 065
  6. TROPINAL [Concomitant]
     Route: 065
  7. RESIST [Concomitant]
     Route: 065
  8. CEDRILAX [Concomitant]
     Route: 065
  9. STELARA [Suspect]
     Active Substance: USTEKINUMAB
     Indication: CROHN^S DISEASE
     Route: 058
     Dates: start: 20180408
  10. STELARA [Suspect]
     Active Substance: USTEKINUMAB
     Indication: CROHN^S DISEASE
     Route: 058
     Dates: start: 20190201
  11. STELARA [Suspect]
     Active Substance: USTEKINUMAB
     Indication: CROHN^S DISEASE
     Route: 058
     Dates: start: 20180307
  12. DIPYRONE [Concomitant]
     Active Substance: DIPYRONE
     Route: 065
  13. BUSCOPAN [Concomitant]
     Active Substance: BUTYLSCOPOLAMINE BROMIDE
     Route: 065
  14. AZATHIOPRINE. [Concomitant]
     Active Substance: AZATHIOPRINE
     Route: 065
  15. VITAMIN D [Concomitant]
     Active Substance: CHOLECALCIFEROL
     Route: 065
  16. SIMETHICONE (DIMETHICONE) [Concomitant]
     Active Substance: DIMETHICONE
     Indication: PRODUCT USED FOR UNKNOWN INDICATION
     Route: 065

REACTIONS (15)
  - Megacolon [Recovered/Resolved]
  - Hospitalisation [Unknown]
  - Drug ineffective [Unknown]
  - Blood zinc decreased [Unknown]
  - Blood potassium decreased [Recovering/Resolving]
  - Gastrointestinal necrosis [Recovering/Resolving]
  - Dizziness [Unknown]
  - Anaemia [Recovering/Resolving]
  - Short-bowel syndrome [Not Recovered/Not Resolved]
  - Platelet count decreased [Recovering/Resolving]
  - Gastrointestinal infection [Recovering/Resolving]
  - Swelling [Unknown]
  - Crohn^s disease [Recovered/Resolved]
  - Post procedural diarrhoea [Not Recovered/Not Resolved]
  - Hypovitaminosis [Not Recovered/Not Resolved]

NARRATIVE: CASE EVENT DATE: 2018
